FAERS Safety Report 5488031-4 (Version None)
Quarter: 2007Q4

REPORT INFORMATION
  Report Type: 
  Country: None (occurrence: None)
  Receive Date: 20071017
  Receipt Date: 20071011
  Transmission Date: 20080405
  Serious: Yes (Other)
  Sender: FDA-Public Use
  Company Number: US-JNJFOC-20071003364

PATIENT

DRUGS (2)
  1. CONCERTA [Suspect]
     Route: 048
  2. CONCERTA [Suspect]
     Indication: DRUG USE FOR UNKNOWN INDICATION
     Route: 048

REACTIONS (3)
  - GAIT DISTURBANCE [None]
  - NERVOUS SYSTEM DISORDER [None]
  - POSITIVE ROMBERGISM [None]
